FAERS Safety Report 8824091 (Version 2)
Quarter: 2014Q3

REPORT INFORMATION
  Report Type: Report from Study
  Country: US (occurrence: US)
  Receive Date: 20121003
  Receipt Date: 20140917
  Transmission Date: 20150326
  Serious: Yes (Hospitalization, Other)
  Sender: FDA-Public Use
  Company Number: US-ROCHE-1131377

PATIENT
  Sex: Male

DRUGS (6)
  1. CYCLOPHOSPHAMIDE. [Concomitant]
     Active Substance: CYCLOPHOSPHAMIDE
  2. DECADRON [Concomitant]
     Active Substance: DEXAMETHASONE
  3. PREDNISONE. [Concomitant]
     Active Substance: PREDNISONE
  4. RITUXAN [Suspect]
     Active Substance: RITUXIMAB
     Indication: WALDENSTROM^S MACROGLOBULINAEMIA
     Route: 065
     Dates: start: 19980218
  5. ADRIAMYCIN [Concomitant]
     Active Substance: DOXORUBICIN HYDROCHLORIDE
  6. VINCRISTINE [Concomitant]
     Active Substance: VINCRISTINE

REACTIONS (15)
  - Dizziness [Unknown]
  - Abdominal pain [Unknown]
  - Telangiectasia [Unknown]
  - Rectal haemorrhage [Unknown]
  - Blood creatinine increased [Unknown]
  - Epistaxis [Unknown]
  - Malaise [Unknown]
  - Therapy responder [Unknown]
  - Bone marrow leukaemic cell infiltration [Unknown]
  - Blood viscosity increased [Unknown]
  - Disease progression [Unknown]
  - Haemoglobin decreased [Unknown]
  - Haemorrhoidal haemorrhage [Unknown]
  - Hyperaemia [Unknown]
  - Breath sounds abnormal [Unknown]
